FAERS Safety Report 21119419 (Version 1)
Quarter: 2022Q3

REPORT INFORMATION
  Report Type: Spontaneous
  Country: JP (occurrence: JP)
  Receive Date: 20220722
  Receipt Date: 20220722
  Transmission Date: 20221027
  Serious: Yes (Hospitalization, Other)
  Sender: FDA-Public Use
  Company Number: JP-GLAXOSMITHKLINE-JP2022JPN074564

PATIENT

DRUGS (5)
  1. VALTREX [Suspect]
     Active Substance: VALACYCLOVIR HYDROCHLORIDE
     Indication: Herpes zoster
     Dosage: 1000 MG, TID
     Route: 048
     Dates: start: 20220425, end: 20220427
  2. KIKLIN CAPSULES [Concomitant]
     Dosage: UNK
     Route: 048
  3. LANTHANUM CARBONATE [Concomitant]
     Active Substance: LANTHANUM CARBONATE
     Dosage: UNK
     Route: 048
  4. CALONAL [Concomitant]
     Active Substance: ACETAMINOPHEN
     Dosage: UNK
     Route: 048
  5. METHYCOBAL TABLET [Concomitant]
     Dosage: UNK
     Route: 048

REACTIONS (6)
  - Toxic encephalopathy [Recovered/Resolved]
  - Hallucination [Recovering/Resolving]
  - Nausea [Recovering/Resolving]
  - Dizziness [Recovering/Resolving]
  - Speech disorder [Unknown]
  - Prescribed overdose [Unknown]

NARRATIVE: CASE EVENT DATE: 20220427
